FAERS Safety Report 17400858 (Version 1)
Quarter: 2020Q1

REPORT INFORMATION
  Report Type: Spontaneous
  Country: US (occurrence: US)
  Receive Date: 20200208
  Receipt Date: 20200208
  Transmission Date: 20200409
  Serious: Yes (Death)
  Sender: FDA-Public Use
  Company Number: None

PATIENT
  Sex: Female

DRUGS (1)
  1. GABAPENTIN. [Suspect]
     Active Substance: GABAPENTIN
     Indication: PAIN
     Route: 048

REACTIONS (6)
  - Fatigue [None]
  - Dyspnoea [None]
  - Pneumonia klebsiella [None]
  - Loss of personal independence in daily activities [None]
  - Mood altered [None]
  - Feeling abnormal [None]
